FAERS Safety Report 6760887-4 (Version None)
Quarter: 2010Q2

REPORT INFORMATION
  Report Type: 
  Country: None (occurrence: None)
  Receive Date: 20100608
  Receipt Date: 20100525
  Transmission Date: 20101027
  Serious: Yes (Death)
  Sender: FDA-Public Use
  Company Number: DE-ROCHE-703536

PATIENT
  Sex: Male
  Weight: 67 kg

DRUGS (3)
  1. PEGASYS [Suspect]
     Route: 058
     Dates: start: 20100305, end: 20100423
  2. COPEGUS [Suspect]
     Route: 048
     Dates: start: 20100305, end: 20100502
  3. IBUPROFEN [Concomitant]
     Route: 048
     Dates: start: 20100305, end: 20100430

REACTIONS (5)
  - ACUTE RIGHT VENTRICULAR FAILURE [None]
  - ANGIOPATHY [None]
  - DYSPNOEA [None]
  - MYALGIA [None]
  - PORTOPULMONARY HYPERTENSION [None]
